FAERS Safety Report 10759090 (Version 2)
Quarter: 2015Q1

REPORT INFORMATION
  Report Type: Spontaneous
  Country: IL (occurrence: IL)
  Receive Date: 20150203
  Receipt Date: 20150206
  Transmission Date: 20150721
  Serious: Yes (Hospitalization, Other)
  Sender: FDA-Public Use
  Company Number: IL-PFIZER INC-2015044422

PATIENT
  Age: 72 Year
  Sex: Male

DRUGS (3)
  1. INLYTA [Suspect]
     Active Substance: AXITINIB
     Indication: RENAL CELL CARCINOMA
     Dosage: 5 MG, 1X/DAY, CONSECUTIVELY, CUMULATIVE DOSE 70
     Route: 048
     Dates: start: 20150114, end: 20150128
  2. PREDNISONE. [Concomitant]
     Active Substance: PREDNISONE
  3. EPANUTIN [Concomitant]
     Active Substance: PHENYTOIN SODIUM

REACTIONS (4)
  - Seizure [Unknown]
  - Blood pressure increased [Not Recovered/Not Resolved]
  - Asthenia [Unknown]
  - Headache [Unknown]

NARRATIVE: CASE EVENT DATE: 201501
